FAERS Safety Report 5781654-4 (Version None)
Quarter: 2008Q2

REPORT INFORMATION
  Report Type: 
  Country: None (occurrence: None)
  Receive Date: 20080623
  Receipt Date: 20080611
  Transmission Date: 20081010
  Serious: Yes (Death)
  Sender: FDA-Public Use
  Company Number: JP-ROCHE-565795

PATIENT
  Age: 99 Year
  Sex: Female
  Weight: 43 kg

DRUGS (1)
  1. ROCEPHIN [Suspect]
     Indication: PNEUMONIA ASPIRATION
     Route: 041
     Dates: start: 20080501, end: 20080509

REACTIONS (1)
  - PANCYTOPENIA [None]
